FAERS Safety Report 13665130 (Version 2)
Quarter: 2017Q3

REPORT INFORMATION
  Report Type: Spontaneous
  Country: US (occurrence: US)
  Receive Date: 20170619
  Receipt Date: 20170707
  Transmission Date: 20171127
  Serious: No
  Sender: FDA-Public Use
  Company Number: US-PFIZER INC-2017261680

PATIENT
  Age: 62 Year
  Sex: Female

DRUGS (3)
  1. IBRANCE [Suspect]
     Active Substance: PALBOCICLIB
     Indication: BREAST CANCER STAGE IV
     Dosage: 100 MG, CYCLIC [EVERY DAY FOR 21 DAYS ON AND 7 DAYS OFF]
     Route: 048
     Dates: start: 201702
  2. FASLODEX [Concomitant]
     Active Substance: FULVESTRANT
     Indication: BREAST CANCER STAGE IV
     Dosage: 500 MG, UNK (Q 28 D)
     Dates: start: 201611
  3. IBRANCE [Suspect]
     Active Substance: PALBOCICLIB
     Indication: NEOPLASM MALIGNANT
     Dosage: 125 MG, CYCLIC (QD, 21 D ON, 7 D OFF)
     Route: 048
     Dates: start: 20161109

REACTIONS (5)
  - Gastrooesophageal reflux disease [Recovered/Resolved]
  - Hair texture abnormal [Unknown]
  - Fatigue [Unknown]
  - Visual impairment [Unknown]
  - Paraesthesia [Unknown]

NARRATIVE: CASE EVENT DATE: 201703
